FAERS Safety Report 5850437-9 (Version None)
Quarter: 2008Q3

REPORT INFORMATION
  Report Type: 
  Country: None (occurrence: None)
  Receive Date: 20080819
  Receipt Date: 20080807
  Transmission Date: 20090109
  Serious: Yes (Hospitalization, Other)
  Sender: FDA-Public Use
  Company Number: AR-PFIZER INC-2008047889

PATIENT
  Sex: Female
  Weight: 59 kg

DRUGS (8)
  1. EXEMESTANE [Suspect]
     Indication: BREAST CANCER
     Route: 048
     Dates: start: 20080327, end: 20080607
  2. LEVOTHYROXINE SODIUM [Concomitant]
     Route: 048
  3. ALPRAZOLAM [Concomitant]
     Route: 048
  4. FLUOXETINE [Concomitant]
     Route: 048
  5. SALMETEROL [Concomitant]
     Route: 055
  6. FLUTICASONE PROPIONATE [Concomitant]
     Route: 055
     Dates: start: 20080404
  7. SALBUTAMOL [Concomitant]
     Route: 055
     Dates: start: 20080404, end: 20080527
  8. MEPREDNISONE [Concomitant]
     Route: 048
     Dates: start: 20080401, end: 20080527

REACTIONS (1)
  - ORGANISING PNEUMONIA [None]
